FAERS Safety Report 20151644 (Version 1)
Quarter: 2021Q4

REPORT INFORMATION
  Report Type: Other
  Country: FR (occurrence: None)
  Receive Date: 20211206
  Receipt Date: 20211206
  Transmission Date: 20220303
  Serious: Yes (Other)
  Sender: FDA-Public Use
  Company Number: FR-ROCHE-2971932

PATIENT

DRUGS (2)
  1. RITUXIMAB [Suspect]
     Active Substance: RITUXIMAB
     Indication: Multiple sclerosis
     Route: 041
  2. RITUXIMAB [Suspect]
     Active Substance: RITUXIMAB
     Dosage: MAINTENANCE REGIMEN
     Route: 041

REACTIONS (19)
  - Upper respiratory tract infection [Unknown]
  - Urinary tract infection [Unknown]
  - Lower respiratory tract infection [Unknown]
  - Skin infection [Unknown]
  - Gastrointestinal infection [Unknown]
  - Eye infection [Unknown]
  - Meningitis enteroviral [Unknown]
  - Cerebrovascular accident [Unknown]
  - Inflammatory bowel disease [Unknown]
  - Toxic skin eruption [Unknown]
  - Myocardial infarction [Unknown]
  - Genital infection [Unknown]
  - Infection [Unknown]
  - Tooth infection [Unknown]
  - Infection [Unknown]
  - Hypogammaglobulinaemia [Unknown]
  - Psoriasis [Unknown]
  - Off label use [Unknown]
  - Oral infection [Unknown]
